FAERS Safety Report 23461655 (Version 1)
Quarter: 2024Q1

REPORT INFORMATION
  Report Type: Spontaneous
  Country: US (occurrence: None)
  Receive Date: 20240130
  Receipt Date: 20240130
  Transmission Date: 20240410
  Serious: Yes (Death)
  Sender: FDA-Public Use
  Company Number: None

PATIENT
  Age: 82 Year
  Sex: Male

DRUGS (11)
  1. TREMFYA [Suspect]
     Active Substance: GUSELKUMAB
     Indication: Psoriasis
     Dosage: 100MG EVERY 8 WEEKS UNDER THE SKIN?
     Route: 058
     Dates: start: 20231120, end: 20240129
  2. AMMONIUM LACTATE [Concomitant]
     Active Substance: AMMONIUM LACTATE
  3. ASPIRIN EC LOW DOSE [Concomitant]
  4. BETAMETHASONE DIP LOTN [Concomitant]
  5. CLOBETASOL PROPIONATE [Concomitant]
     Active Substance: CLOBETASOL PROPIONATE
  6. FLUCONAZOLE [Concomitant]
     Active Substance: FLUCONAZOLE
  7. FUROSEMIDE [Concomitant]
     Active Substance: FUROSEMIDE
  8. INSULIN LISPRO [Concomitant]
     Active Substance: INSULIN LISPRO
  9. VITAMINS [Concomitant]
     Active Substance: VITAMINS
  10. NORCO [Concomitant]
     Active Substance: ACETAMINOPHEN\HYDROCODONE BITARTRATE
  11. OZEMPIC [Concomitant]
     Active Substance: SEMAGLUTIDE

REACTIONS (1)
  - Death [None]

NARRATIVE: CASE EVENT DATE: 20240129
